FAERS Safety Report 18441780 (Version 2)
Quarter: 2020Q4

REPORT INFORMATION
  Report Type: Other
  Country: US (occurrence: US)
  Receive Date: 20201029
  Receipt Date: 20201102
  Transmission Date: 20210114
  Serious: Yes (Other)
  Sender: FDA-Public Use
  Company Number: US-ROCHE-2704928

PATIENT
  Sex: Female

DRUGS (3)
  1. AMPYRA [Concomitant]
     Active Substance: DALFAMPRIDINE
  2. PRIMIDONE. [Concomitant]
     Active Substance: PRIMIDONE
  3. OCREVUS [Suspect]
     Active Substance: OCRELIZUMAB
     Indication: PRIMARY PROGRESSIVE MULTIPLE SCLEROSIS
     Dosage: PRESCRIBED WITH 300 MG DAY + 300 MG IV DAY 15?DATE OF TREATMENT: 22/APR/2020
     Route: 042
     Dates: start: 20200408

REACTIONS (1)
  - Urinary tract infection [Not Recovered/Not Resolved]
